FAERS Safety Report 23422263 (Version 2)
Quarter: 2025Q1

REPORT INFORMATION
  Report Type: Spontaneous
  Country: US (occurrence: US)
  Receive Date: 20240119
  Receipt Date: 20250326
  Transmission Date: 20250409
  Serious: Yes (Hospitalization, Other)
  Sender: SANOFI AVENTIS
  Company Number: US-SA-SAC20240118001528

PATIENT
  Age: 78 Year
  Sex: Male
  Weight: 68.027 kg

DRUGS (15)
  1. DUPIXENT [Suspect]
     Active Substance: DUPILUMAB
     Indication: Dermatitis atopic
     Dosage: 300 MG, QOW
     Route: 058
  2. CREON [Concomitant]
     Active Substance: PANCRELIPASE AMYLASE\PANCRELIPASE LIPASE\PANCRELIPASE PROTEASE
  3. MIRTAZAPINE [Concomitant]
     Active Substance: MIRTAZAPINE
  4. FERROUS SULFATE [Concomitant]
     Active Substance: FERROUS SULFATE
  5. VITAMIN D NOS [Concomitant]
     Active Substance: CHOLECALCIFEROL\ERGOCALCIFEROL
  6. SERTRALINE HYDROCHLORIDE [Concomitant]
     Active Substance: SERTRALINE HYDROCHLORIDE
  7. ALFUZOSIN HYDROCHLORIDE [Concomitant]
     Active Substance: ALFUZOSIN HYDROCHLORIDE
  8. URSODIOL [Concomitant]
     Active Substance: URSODIOL
  9. BUMETANIDE [Concomitant]
     Active Substance: BUMETANIDE
  10. OMEGA-3 FATTY ACIDS [Concomitant]
     Active Substance: OMEGA-3 FATTY ACIDS
  11. MINERALS\VITAMINS [Concomitant]
     Active Substance: MINERALS\VITAMINS
  12. CLOBETASOL [Concomitant]
     Active Substance: CLOBETASOL
  13. KETOCONAZOLE [Concomitant]
     Active Substance: KETOCONAZOLE
  14. SPIRONOLACTONE [Concomitant]
     Active Substance: SPIRONOLACTONE
  15. VITAMIN C [Concomitant]
     Active Substance: ASCORBIC ACID

REACTIONS (2)
  - Pancreatitis [Recovered/Resolved]
  - Complication associated with device [Unknown]

NARRATIVE: CASE EVENT DATE: 20240101
